FAERS Safety Report 4834622-0 (Version None)
Quarter: 2005Q4

REPORT INFORMATION
  Report Type: 
  Country: None (occurrence: None)
  Receive Date: 20051122
  Receipt Date: 20050520
  Transmission Date: 20060501
  Serious: No
  Sender: FDA-Public Use
  Company Number: US-BRISTOL-MYERS SQUIBB COMPANY-12977302

PATIENT
  Age: 76 Year
  Sex: Male
  Weight: 73 kg

DRUGS (6)
  1. PRAVACOL TABS [Suspect]
     Indication: BLOOD CHOLESTEROL INCREASED
  2. ISOSORBIDE [Concomitant]
     Dates: start: 20050301, end: 20050501
  3. PROTONIX [Concomitant]
  4. CARDURA [Concomitant]
  5. COLCHICINE [Concomitant]
  6. ATENOLOL [Concomitant]

REACTIONS (1)
  - HEADACHE [None]
